FAERS Safety Report 7113098-7 (Version None)
Quarter: 2010Q4

REPORT INFORMATION
  Report Type: 
  Country: None (occurrence: None)
  Receive Date: 20101119
  Receipt Date: 20101116
  Transmission Date: 20110411
  Serious: Yes (Other)
  Sender: FDA-Public Use
  Company Number: KR-ROXANE LABORATORIES, INC.-2010-RO-01508RO

PATIENT
  Age: 44 Year
  Sex: Female

DRUGS (1)
  1. LIDOCAINE [Suspect]
     Indication: ANAESTHESIA

REACTIONS (4)
  - OPTIC ATROPHY [None]
  - OPTIC NERVE CUPPING [None]
  - RETINAL PIGMENT EPITHELIOPATHY [None]
  - RETINOPATHY HAEMORRHAGIC [None]
